FAERS Safety Report 7083956-0 (Version None)
Quarter: 2010Q4

REPORT INFORMATION
  Report Type: 
  Country: None (occurrence: None)
  Receive Date: 20101104
  Receipt Date: 20100419
  Transmission Date: 20110411
  Serious: No
  Sender: FDA-Public Use
  Company Number: US-ABBOTT-10P-163-0640290-00

PATIENT
  Sex: Male

DRUGS (1)
  1. KALETRA [Suspect]
     Indication: HIV TEST POSITIVE
     Route: 048

REACTIONS (6)
  - DIARRHOEA [None]
  - NASOPHARYNGITIS [None]
  - NAUSEA [None]
  - RENAL DISORDER [None]
  - RESPIRATORY DISORDER [None]
  - VOMITING [None]
